FAERS Safety Report 18100008 (Version 3)
Quarter: 2020Q3

REPORT INFORMATION
  Report Type: Spontaneous
  Country: US (occurrence: US)
  Receive Date: 20200731
  Receipt Date: 20200917
  Transmission Date: 20201103
  Serious: Yes (Hospitalization, Other)
  Sender: FDA-Public Use
  Company Number: US-009507513-2001USA000578

PATIENT
  Sex: Male

DRUGS (5)
  1. STERILE DILUENT (WATER) [Suspect]
     Active Substance: WATER
     Dosage: UNK
     Dates: start: 20150901
  2. INFLUENZA VIRUS VACCINE (UNSPECIFIED) [Concomitant]
     Active Substance: INFLUENZA VIRUS VACCINE
     Dosage: UNK
     Route: 065
     Dates: start: 20150901
  3. ZOSTAVAX [Suspect]
     Active Substance: VARICELLA-ZOSTER VIRUS STRAIN OKA/MERCK LIVE ANTIGEN
     Indication: PROPHYLAXIS
  4. ZOSTAVAX [Suspect]
     Active Substance: VARICELLA-ZOSTER VIRUS STRAIN OKA/MERCK LIVE ANTIGEN
     Indication: ROUTINE HEALTH MAINTENANCE
     Route: 058
     Dates: start: 20150901
  5. ALLOPURINOL. [Concomitant]
     Active Substance: ALLOPURINOL
     Indication: GOUT
     Dosage: 300 MILLIGRAM
     Dates: start: 2014

REACTIONS (17)
  - Hypertension [Unknown]
  - Presbyopia [Unknown]
  - Cerebrovascular accident [Recovering/Resolving]
  - Glaucoma [Unknown]
  - Dry eye [Unknown]
  - Cardiac disorder [Unknown]
  - Skin laceration [Unknown]
  - Dysmetria [Unknown]
  - Type V hyperlipidaemia [Unknown]
  - Glucose tolerance impaired [Unknown]
  - Ataxia [Unknown]
  - Ear infection [Unknown]
  - Hypermetropia [Unknown]
  - Astigmatism [Unknown]
  - Amaurosis fugax [Recovered/Resolved]
  - Cerumen impaction [Unknown]
  - Obesity [Unknown]

NARRATIVE: CASE EVENT DATE: 20151019
